FAERS Safety Report 10431846 (Version 2)
Quarter: 2015Q1

REPORT INFORMATION
  Report Type: Report from Study
  Country: ES (occurrence: ES)
  Receive Date: 20140905
  Receipt Date: 20150316
  Transmission Date: 20150720
  Serious: Yes (Other)
  Sender: FDA-Public Use
  Company Number: ES-ROCHE-1455231

PATIENT

DRUGS (2)
  1. EVEROLIMUS [Suspect]
     Active Substance: EVEROLIMUS
     Indication: PROPHYLAXIS AGAINST TRANSPLANT REJECTION
     Route: 065
  2. MYCOPHENOLATE MOFETIL. [Suspect]
     Active Substance: MYCOPHENOLATE MOFETIL
     Indication: PROPHYLAXIS AGAINST TRANSPLANT REJECTION
     Route: 065

REACTIONS (10)
  - Hepatocellular carcinoma [Unknown]
  - Leukopenia [Unknown]
  - Hyperlipidaemia [Unknown]
  - Wound dehiscence [Unknown]
  - Lymphoedema [Unknown]
  - Proteinuria [Unknown]
  - Thrombocytopenia [Unknown]
  - Cytomegalovirus infection [Unknown]
  - Anaemia [Unknown]
  - Liver transplant rejection [Unknown]
